FAERS Safety Report 10581439 (Version 2)
Quarter: 2014Q4

REPORT INFORMATION
  Report Type: Spontaneous
  Country: BR (occurrence: BR)
  Receive Date: 20141113
  Receipt Date: 20141222
  Transmission Date: 20150529
  Serious: Yes (Other)
  Sender: FDA-Public Use
  Company Number: BR-ASTELLAS-2014US017032

PATIENT
  Sex: Female
  Weight: 59 kg

DRUGS (1)
  1. TACROLIMUS. [Suspect]
     Active Substance: TACROLIMUS
     Indication: ECZEMA
     Dosage: UNK, UNKNOWN FREQ.
     Route: 061
     Dates: start: 201207, end: 201311

REACTIONS (4)
  - Abortion spontaneous [Unknown]
  - Exposure during pregnancy [Unknown]
  - Infertility [Recovered/Resolved]
  - Alcohol intolerance [Unknown]

NARRATIVE: CASE EVENT DATE: 2012
